FAERS Safety Report 16644237 (Version 15)
Quarter: 2021Q2

REPORT INFORMATION
  Report Type: Report from Study
  Country: US (occurrence: US)
  Receive Date: 20190729
  Receipt Date: 20210510
  Transmission Date: 20210716
  Serious: Yes (Hospitalization, Other)
  Sender: FDA-Public Use
  Company Number: PHEH2019US031389

PATIENT
  Age: 62 Year
  Sex: Female
  Weight: 107.48 kg

DRUGS (5)
  1. TREPROSTINIL. [Suspect]
     Active Substance: TREPROSTINIL
     Dosage: 66 NANOGRAM PER KILOGRAM/MIN
     Route: 042
     Dates: start: 20190424
  2. TREPROSTINIL. [Suspect]
     Active Substance: TREPROSTINIL
     Dosage: 66 NANOGRAM PER KILOGRAM/MIN
     Route: 042
     Dates: start: 20190424
  3. REVATIO [Concomitant]
     Active Substance: SILDENAFIL CITRATE
     Indication: PRODUCT USED FOR UNKNOWN INDICATION
     Dosage: UNK
     Route: 065
  4. TREPROSTINIL. [Suspect]
     Active Substance: TREPROSTINIL
     Indication: PULMONARY ARTERIAL HYPERTENSION
     Dosage: 57 NANOGRAM PER KILOGRAM/MIN
     Route: 065
     Dates: start: 20190424
  5. TREPROSTINIL. [Suspect]
     Active Substance: TREPROSTINIL
     Dosage: 66 NANOGRAM PER KILOGRAM/MIN
     Route: 042
     Dates: start: 20190424

REACTIONS (13)
  - Aspiration [Unknown]
  - Anxiety [Unknown]
  - Fluid retention [Unknown]
  - Soft tissue disorder [Unknown]
  - Dyspnoea [Unknown]
  - Pneumonia [Unknown]
  - Wound [Unknown]
  - Wound infection [Unknown]
  - Fluid overload [Unknown]
  - Wound necrosis [Unknown]
  - Endocarditis [Unknown]
  - Staphylococcal infection [Unknown]
  - Wheezing [Unknown]

NARRATIVE: CASE EVENT DATE: 20200923
